FAERS Safety Report 20608097 (Version 1)
Quarter: 2022Q1

REPORT INFORMATION
  Report Type: Report from Study
  Country: CO (occurrence: CO)
  Receive Date: 20220317
  Receipt Date: 20220317
  Transmission Date: 20220423
  Serious: Yes (Hospitalization)
  Sender: FDA-Public Use
  Company Number: CO-ABBVIE-21K-036-4169133-00

PATIENT
  Age: 82 Year
  Sex: Female
  Weight: 70 kg

DRUGS (5)
  1. HUMIRA [Suspect]
     Active Substance: ADALIMUMAB
     Indication: Rheumatoid arthritis
     Route: 058
     Dates: end: 20220225
  2. HUMIRA [Suspect]
     Active Substance: ADALIMUMAB
     Indication: Rheumatoid arthritis
     Route: 058
     Dates: start: 20100825
  3. ACETAMINOPHEN\CAFFEINE\NAPROXEN [Suspect]
     Active Substance: ACETAMINOPHEN\CAFFEINE\NAPROXEN
     Indication: Arthralgia
     Route: 048
     Dates: end: 2021
  4. BETAMETHASONE DIPROPIONATE\BETAMETHASONE SODIUM PHOSPHATE [Suspect]
     Active Substance: BETAMETHASONE DIPROPIONATE\BETAMETHASONE SODIUM PHOSPHATE
     Indication: Arthralgia
     Route: 030
     Dates: end: 2021
  5. EXFORGE [Concomitant]
     Active Substance: AMLODIPINE BESYLATE\VALSARTAN
     Indication: Hypertension
     Route: 048
     Dates: start: 202111

REACTIONS (14)
  - Malaise [Recovered/Resolved]
  - Drug dependence [Recovered/Resolved]
  - Cushing^s syndrome [Not Recovered/Not Resolved]
  - Renal disorder [Not Recovered/Not Resolved]
  - Foot deformity [Unknown]
  - Diabetes mellitus [Not Recovered/Not Resolved]
  - Inflammation [Recovering/Resolving]
  - Emotional disorder [Not Recovered/Not Resolved]
  - Blood triglycerides increased [Not Recovered/Not Resolved]
  - Blood cholesterol increased [Not Recovered/Not Resolved]
  - Pyrexia [Not Recovered/Not Resolved]
  - Arthralgia [Unknown]
  - Influenza [Recovered/Resolved]
  - Inappropriate schedule of product administration [Unknown]

NARRATIVE: CASE EVENT DATE: 20211101
